FAERS Safety Report 25092290 (Version 1)
Quarter: 2025Q1

REPORT INFORMATION
  Report Type: Spontaneous
  Country: BR (occurrence: BR)
  Receive Date: 20250319
  Receipt Date: 20250319
  Transmission Date: 20250409
  Serious: Yes (Other)
  Sender: BOEHRINGER INGELHEIM
  Company Number: BR-Komodo Health-a23aa000006LMdBAAW

PATIENT
  Age: 86 Year
  Sex: Female

DRUGS (1)
  1. GLYXAMBI [Suspect]
     Active Substance: EMPAGLIFLOZIN\LINAGLIPTIN
     Indication: Diabetes mellitus
     Dosage: FORM STRENGTH:25MG/5MG?ONE TABLET AFTER BREAKFAST

REACTIONS (6)
  - Myocardial infarction [Unknown]
  - Cerebrovascular accident [Unknown]
  - Renal neoplasm [Unknown]
  - Blood glucose increased [Unknown]
  - Asthenia [Unknown]
  - Condition aggravated [Unknown]
